FAERS Safety Report 23042409 (Version 1)
Quarter: 2023Q4

REPORT INFORMATION
  Report Type: Spontaneous
  Country: CA (occurrence: CA)
  Receive Date: 20231008
  Receipt Date: 20231008
  Transmission Date: 20240109
  Serious: Yes (Hospitalization)
  Sender: FDA-Public Use
  Company Number: CA-002147023-NVSC2023CA083156

PATIENT
  Age: 37 Year
  Sex: Female

DRUGS (1)
  1. CYCLOSPORINE [Suspect]
     Active Substance: CYCLOSPORINE
     Indication: Aplastic anaemia
     Dosage: 75 MG, QD (6 MONTH OR LONGER WITH FREQUENT PHYSICIAN ASSESSMENT)
     Route: 048

REACTIONS (3)
  - Vaginal haemorrhage [Unknown]
  - Platelet count decreased [Unknown]
  - Drug ineffective for unapproved indication [Unknown]
